FAERS Safety Report 5622844-0 (Version None)
Quarter: 2008Q1

REPORT INFORMATION
  Report Type: 
  Country: None (occurrence: None)
  Receive Date: 20080208
  Receipt Date: 20080208
  Transmission Date: 20080703
  Serious: Yes (Other)
  Sender: FDA-Public Use
  Company Number: None

PATIENT
  Sex: Female
  Weight: 97.5234 kg

DRUGS (7)
  1. GLUCOVANCE [Suspect]
     Indication: TYPE 2 DIABETES MELLITUS
     Dosage: 2.5/500 TID PO
     Route: 048
     Dates: start: 20060622, end: 20060629
  2. TOPROL-XL [Concomitant]
  3. CRESTOR [Concomitant]
  4. LASIX [Concomitant]
  5. NORVASC [Concomitant]
  6. DYAZIDE [Concomitant]
  7. MULTIVIT. [Concomitant]

REACTIONS (3)
  - DRUG INTOLERANCE [None]
  - HEADACHE [None]
  - THERAPEUTIC RESPONSE UNEXPECTED WITH DRUG SUBSTITUTION [None]
